FAERS Safety Report 8924897 (Version 1)
Quarter: 2012Q4

REPORT INFORMATION
  Report Type: 
  Country: US (occurrence: US)
  Receive Date: 20121126
  Receipt Date: 20121126
  Transmission Date: 20130627
  Serious: Yes (Hospitalization)
  Sender: FDA-Public Use
  Company Number: US-SANOFI-AVENTIS-200710211US

PATIENT
  Age: 65 Year
  Sex: Male

DRUGS (10)
  1. INSULIN GLULISINE [Suspect]
     Indication: DIABETES MELLITUS NON-INSULIN-DEPENDENT
     Dosage: Dose as used: SLIDING SCALE, 9-15 UNITS 2-3 TIMES PER DAY
     Dates: start: 200607
  2. NAPROXEN [Suspect]
     Indication: ANKLE SWELLING
     Route: 048
     Dates: start: 200608, end: 20060903
  3. LEVEMIR [Concomitant]
     Dosage: Dose as used: UNK
     Dates: start: 200601
  4. COREG [Concomitant]
     Dosage: Dose as used: UNK
  5. LISINOPRIL [Concomitant]
     Dosage: Dose as used: UNK
  6. GLYBURIDE [Concomitant]
     Dosage: Dose as used: UNK
  7. FUROSEMIDE [Concomitant]
     Dosage: Dose as used: UNK
  8. WARFARIN [Concomitant]
     Dosage: Dose as used: UNK
  9. LIPITOR /NET/ [Concomitant]
     Dosage: Dose as used: UNK
  10. INSPRA [Concomitant]
     Dosage: Dose as used: UNK

REACTIONS (6)
  - Hypoglycaemic coma [Recovered/Resolved]
  - Hypoglycaemia [Recovered/Resolved]
  - Drug interaction [Recovered/Resolved]
  - Blood glucose decreased [Unknown]
  - Blood glucose fluctuation [Recovering/Resolving]
  - Blood glucose decreased [Unknown]
